FAERS Safety Report 8136617-0 (Version None)
Quarter: 2012Q1

REPORT INFORMATION
  Report Type: 
  Country: None (occurrence: None)
  Receive Date: 20120214
  Receipt Date: 20120203
  Transmission Date: 20120608
  Serious: Yes (Hospitalization)
  Sender: FDA-Public Use
  Company Number: GB-ELI_LILLY_AND_COMPANY-GB201202001489

PATIENT
  Sex: Female

DRUGS (3)
  1. CYMBALTA [Suspect]
     Dosage: UNK, UNKNOWN
  2. CYMBALTA [Suspect]
     Indication: DEPRESSION
     Dosage: 120 MG, UNK
  3. CYMBALTA [Suspect]
     Dosage: 30 MG, UNK

REACTIONS (2)
  - HOSPITALISATION [None]
  - DRUG INEFFECTIVE [None]
